FAERS Safety Report 5060091-4 (Version None)
Quarter: 2006Q3

REPORT INFORMATION
  Report Type: 
  Country: None (occurrence: None)
  Receive Date: 20060719
  Receipt Date: 20060704
  Transmission Date: 20061208
  Serious: No
  Sender: FDA-Public Use
  Company Number: E3810-00014-SPO-CA

PATIENT
  Age: 33 Year
  Sex: Female

DRUGS (1)
  1. RABEPRAZOLE SODIUM [Suspect]
     Dosage: 10 MG, 1 IN 1 D, ORAL
     Route: 048

REACTIONS (3)
  - AGITATION [None]
  - DIARRHOEA [None]
  - MOOD SWINGS [None]
